FAERS Safety Report 11630145 (Version 1)
Quarter: 2015Q4

REPORT INFORMATION
  Report Type: Spontaneous
  Country: IT (occurrence: JP)
  Receive Date: 20151014
  Receipt Date: 20151014
  Transmission Date: 20160304
  Serious: Yes (Death, Other)
  Sender: FDA-Public Use
  Company Number: IT-SIGMA-TAU US-2015STPI000645

PATIENT
  Age: 62 Year
  Sex: Male

DRUGS (5)
  1. ULINASTATIN [Concomitant]
     Active Substance: ULINASTATIN
     Indication: PRODUCT USED FOR UNKNOWN INDICATION
     Route: 065
     Dates: start: 20140914, end: 20140924
  2. LEVOCARNITINE. [Suspect]
     Active Substance: LEVOCARNITINE
     Indication: PRODUCT USED FOR UNKNOWN INDICATION
     Dosage: 2000 MG, X1
     Route: 042
     Dates: start: 20140911, end: 20140911
  3. MEROPENEM. [Concomitant]
     Active Substance: MEROPENEM
     Indication: PRODUCT USED FOR UNKNOWN INDICATION
     Route: 065
     Dates: start: 20140914, end: 20140924
  4. LEVOCARNITINE. [Suspect]
     Active Substance: LEVOCARNITINE
     Dosage: 6000 MG, QD
     Route: 042
     Dates: start: 20140912, end: 20140919
  5. GABEXATE MESILATE [Concomitant]
     Active Substance: GABEXATE MESYLATE
     Indication: PRODUCT USED FOR UNKNOWN INDICATION
     Dosage: UNK, OTHER
     Route: 065
     Dates: start: 20140914, end: 20140924

REACTIONS (2)
  - Death [Fatal]
  - Pancreatitis [Unknown]

NARRATIVE: CASE EVENT DATE: 20140913
